FAERS Safety Report 21751233 (Version 1)
Quarter: 2022Q4

REPORT INFORMATION
  Report Type: Spontaneous
  Country: US (occurrence: US)
  Receive Date: 20221220
  Receipt Date: 20221220
  Transmission Date: 20230112
  Serious: No
  Sender: FDA-Public Use
  Company Number: US-BRISTOL-MYERS SQUIBB COMPANY-2022-155217

PATIENT
  Age: 71 Year
  Sex: Female
  Weight: 50 kg

DRUGS (1)
  1. REVLIMID [Suspect]
     Active Substance: LENALIDOMIDE
     Indication: Plasma cell myeloma
     Route: 048
     Dates: start: 20221026

REACTIONS (2)
  - Blood calcium decreased [Recovering/Resolving]
  - Blood creatinine decreased [Unknown]

NARRATIVE: CASE EVENT DATE: 20221121
